FAERS Safety Report 15473676 (Version 1)
Quarter: 2018Q4

REPORT INFORMATION
  Report Type: Report from Study
  Country: None (occurrence: US)
  Receive Date: 20181008
  Receipt Date: 20181008
  Transmission Date: 20190205
  Serious: Yes (Hospitalization, Other)
  Sender: FDA-Public Use
  Company Number: US-ABBVIE-18K-163-2438742-00

PATIENT
  Age: 74 Year
  Sex: Male
  Weight: 72.64 kg

DRUGS (9)
  1. HUMIRA [Suspect]
     Active Substance: ADALIMUMAB
     Route: 058
     Dates: start: 201707
  2. VALSARTAN. [Concomitant]
     Active Substance: VALSARTAN
     Indication: BLOOD PRESSURE MEASUREMENT
  3. A-REDS VITAMIN [Concomitant]
     Indication: MACULAR DEGENERATION
  4. ATENOLOL AND CHLORTHALIDONE [Concomitant]
     Active Substance: ATENOLOL\CHLORTHALIDONE
     Indication: BLOOD PRESSURE MEASUREMENT
  5. FISH OIL [Concomitant]
     Active Substance: FISH OIL
     Indication: DRY EYE
  6. HUMIRA [Suspect]
     Active Substance: ADALIMUMAB
     Indication: CROHN^S DISEASE
     Route: 058
     Dates: start: 2005, end: 2013
  7. SENOKOT [Concomitant]
     Active Substance: SENNOSIDES
     Indication: CONSTIPATION
  8. CALCIUM CITRATE [Concomitant]
     Active Substance: CALCIUM CITRATE
     Indication: OSTEOPENIA
  9. TRAZODONE [Concomitant]
     Active Substance: TRAZODONE HYDROCHLORIDE
     Indication: SLEEP DISORDER

REACTIONS (13)
  - Weight decreased [Recovering/Resolving]
  - Depression [Recovering/Resolving]
  - Arthrodesis [Recovered/Resolved]
  - Joint abscess [Recovered/Resolved]
  - Arthralgia [Recovered/Resolved]
  - Wound closure [Recovered/Resolved]
  - Complication associated with device [Recovered/Resolved]
  - Medical device implantation [Recovered/Resolved]
  - Ankle operation [Unknown]
  - Exercise tolerance decreased [Recovering/Resolving]
  - Asthenia [Recovering/Resolving]
  - Post procedural infection [Not Recovered/Not Resolved]
  - Surgery [Unknown]

NARRATIVE: CASE EVENT DATE: 2013
